FAERS Safety Report 6732368-5 (Version None)
Quarter: 2010Q2

REPORT INFORMATION
  Report Type: 
  Country: None (occurrence: None)
  Receive Date: 20100519
  Receipt Date: 20100517
  Transmission Date: 20101027
  Serious: Yes (Hospitalization)
  Sender: FDA-Public Use
  Company Number: DE-ROCHE-688412

PATIENT
  Sex: Male
  Weight: 69 kg

DRUGS (4)
  1. PEGINTERFERON ALFA-2A [Suspect]
     Dosage: FORM: INJECTION (PER PROTOCOL)
     Route: 058
     Dates: start: 20090106, end: 20091129
  2. RIBAVIRIN [Suspect]
     Route: 048
     Dates: start: 20090106, end: 20091130
  3. RIBAVIRIN [Suspect]
     Dosage: DOSE REDUCED
     Route: 048
     Dates: start: 20091201, end: 20091206
  4. BLINDED TELAPREVIR [Suspect]
     Dosage: DOSE BLINDED
     Route: 048
     Dates: start: 20090106, end: 20090428

REACTIONS (1)
  - BASEDOW'S DISEASE [None]
